FAERS Safety Report 8151876 (Version 2)
Quarter: 2013Q1

REPORT INFORMATION
  Report Type: Spontaneous
  Country: US (occurrence: US)
  Receive Date: 20110922
  Receipt Date: 20130215
  Transmission Date: 20140127
  Serious: Yes (Other)
  Sender: FDA-Public Use
  Company Number: US-ASTRAZENECA-2011SE12510

PATIENT
  Sex: 0

DRUGS (8)
  1. SEROQUEL [Suspect]
     Route: 048
     Dates: start: 20060915
  2. CEPHALEXIN [Concomitant]
     Dosage: TAKE ONE CAPSULE THREE TIMES DAILY FOR 10 DAYS
     Dates: start: 20051206
  3. INDOMETHACIN [Concomitant]
     Dates: start: 20060315
  4. PROTONIX [Concomitant]
     Dates: start: 20060315
  5. ACETAMINOPHEN W/COD [Concomitant]
     Indication: PAIN
     Dosage: TAKE ONE TABLET EVERY FOUR HOURS AS NEEDED
     Dates: start: 20060317
  6. NAPROXEN [Concomitant]
     Dates: start: 20060324
  7. PREDNISONE [Concomitant]
     Dosage: 2TABS TWICE DAILY 4DAYS, 3 IN MORNING 4DAYS, 2 IN MORNING 7DAYS, 1 IN MORNING F
     Dates: start: 20060407
  8. METHYLPREDNISOLONE [Concomitant]
     Dosage: 3 IN MORNING TDAYS, 2 IN MORING 14 DAYS, THEN 1 DAILY
     Dates: start: 20060715

REACTIONS (3)
  - Pancreatitis [Unknown]
  - Diabetic coma [Unknown]
  - Type 2 diabetes mellitus [Unknown]
